FAERS Safety Report 5274821-X (Version None)
Quarter: 2007Q1

REPORT INFORMATION
  Report Type: 
  Country: None (occurrence: None)
  Receive Date: 20061208
  Receipt Date: 20051221
  Transmission Date: 20070707
  Serious: Yes (Life-Threatening, Disabling)
  Sender: FDA-Public Use
  Company Number: 2005UW08343

PATIENT
  Age: 43 Year
  Sex: Male
  Weight: 88.4514 kg

DRUGS (1)
  1. CRESTOR [Suspect]
     Dosage: 20 MG HS PO
     Route: 048
     Dates: start: 20040201, end: 20050210

REACTIONS (3)
  - BLOOD CREATINE PHOSPHOKINASE INCREASED [None]
  - MUSCULAR WEAKNESS [None]
  - MYALGIA [None]
